FAERS Safety Report 6470031-9 (Version None)
Quarter: 2009Q4

REPORT INFORMATION
  Report Type: 
  Country: None (occurrence: None)
  Receive Date: 20091203
  Receipt Date: 20071016
  Transmission Date: 20100525
  Serious: Yes (Hospitalization)
  Sender: FDA-Public Use
  Company Number: DE-ELI_LILLY_AND_COMPANY-DE200710004374

PATIENT
  Sex: Male

DRUGS (3)
  1. BYETTA [Suspect]
     Indication: DIABETES MELLITUS
     Dosage: 5 UG, 2/D
     Route: 058
     Dates: start: 20070731, end: 20071004
  2. PENTAERYTHRITOL TETRANITRATE [Concomitant]
     Indication: CARDIAC DISORDER
  3. ASPIRIN [Concomitant]

REACTIONS (2)
  - EYELID PTOSIS [None]
  - HEADACHE [None]
